FAERS Safety Report 18251716 (Version 1)
Quarter: 2020Q3

REPORT INFORMATION
  Report Type: Spontaneous
  Country: US (occurrence: US)
  Receive Date: 20200910
  Receipt Date: 20200910
  Transmission Date: 20201103
  Serious: No
  Sender: FDA-Public Use
  Company Number: US-ASTRAZENECA-2020SF14571

PATIENT
  Sex: Female

DRUGS (1)
  1. PULMICORT FLEXHALER [Suspect]
     Active Substance: BUDESONIDE
     Dosage: UNKNOWN UNKNOWN
     Route: 055

REACTIONS (4)
  - Illness [Unknown]
  - Nasal congestion [Unknown]
  - Nasopharyngitis [Unknown]
  - Device malfunction [Unknown]
